FAERS Safety Report 25607242 (Version 1)
Quarter: 2025Q3

REPORT INFORMATION
  Report Type: Spontaneous
  Country: JP (occurrence: JP)
  Receive Date: 20250725
  Receipt Date: 20250725
  Transmission Date: 20251021
  Serious: Yes (Death)
  Sender: AMGEN
  Company Number: JP-BEH-2025213821

PATIENT
  Age: 83 Year
  Sex: Female
  Weight: 37.1 kg

DRUGS (3)
  1. TAVNEOS [Suspect]
     Active Substance: AVACOPAN
     Indication: Anti-neutrophil cytoplasmic antibody positive vasculitis
     Dosage: 40 MG
     Route: 048
  2. TAVNEOS [Suspect]
     Active Substance: AVACOPAN
     Dosage: 20 MG
     Route: 048
  3. BOS TAURUS ADRENAL CORTEX CORTICOSTEROIDS [Concomitant]
     Active Substance: BOS TAURUS ADRENAL CORTEX CORTICOSTEROIDS
     Indication: Anti-neutrophil cytoplasmic antibody positive vasculitis
     Dosage: 20 MG
     Route: 065

REACTIONS (4)
  - Cardio-respiratory arrest [Fatal]
  - Liver disorder [Unknown]
  - Underdose [Unknown]
  - Underdose [Unknown]
